FAERS Safety Report 10076979 (Version 4)
Quarter: 2014Q2

REPORT INFORMATION
  Report Type: Spontaneous
  Country: NO (occurrence: NO)
  Receive Date: 20140414
  Receipt Date: 20140519
  Transmission Date: 20141212
  Serious: Yes (Death, Hospitalization)
  Sender: FDA-Public Use
  Company Number: NO-B.I. PHARMACEUTICALS,INC./RIDGEFIELD-2014-BI-16672NO

PATIENT
  Age: 87 Year
  Sex: Female

DRUGS (4)
  1. PERSANTIN RETARD [Suspect]
     Indication: CEREBRAL INFARCTION
     Dosage: 400 MG
     Route: 048
     Dates: start: 201005, end: 20140327
  2. ALBYL-E [Suspect]
     Indication: CEREBRAL INFARCTION
     Dosage: 75 MG
     Route: 048
     Dates: start: 201005, end: 20140327
  3. PAROKSETIN [Concomitant]
     Dosage: 20 MG
     Route: 048
     Dates: start: 2010, end: 20140327
  4. LIPITOR [Concomitant]
     Indication: HYPERCHOLESTEROLAEMIA
     Dosage: 80 MG
     Route: 048
     Dates: start: 201005, end: 20140327

REACTIONS (1)
  - Subarachnoid haemorrhage [Fatal]
